FAERS Safety Report 8479575-1 (Version None)
Quarter: 2012Q2

REPORT INFORMATION
  Report Type: 
  Country: None (occurrence: None)
  Receive Date: 20120629
  Receipt Date: 20120626
  Transmission Date: 20120825
  Serious: Yes (Death)
  Sender: FDA-Public Use
  Company Number: US-CELGENEUS-163-21880-12063706

PATIENT
  Age: 59 Year
  Sex: Male

DRUGS (12)
  1. AREDIA [Concomitant]
     Route: 065
  2. KAYEXALATE [Concomitant]
     Route: 065
  3. DEXAMETHASONE [Concomitant]
     Dosage: 40 MILLIGRAM
     Route: 065
     Dates: start: 20081013, end: 20090928
  4. PRAVASTATIN [Concomitant]
     Route: 065
  5. REVLIMID [Suspect]
     Dosage: 10 MILLIGRAM
     Route: 048
     Dates: start: 20110625, end: 20110801
  6. ISORDIL [Concomitant]
     Route: 065
  7. PLAVIX [Concomitant]
     Route: 065
  8. REVLIMID [Suspect]
     Dosage: 5 MILLIGRAM
     Route: 048
     Dates: start: 20110801
  9. DEXAMETHASONE [Concomitant]
     Dosage: 40 MILLIGRAM
     Route: 065
     Dates: start: 20110625
  10. FAMOTIDINE [Concomitant]
     Route: 065
  11. REVLIMID [Suspect]
     Indication: MULTIPLE MYELOMA
     Dosage: 10 MILLIGRAM
     Route: 048
     Dates: start: 20081013, end: 20090928
  12. FENOFIBRATE [Concomitant]
     Route: 065

REACTIONS (8)
  - HYPOAESTHESIA [None]
  - TREMOR [None]
  - MUSCLE SPASMS [None]
  - FATIGUE [None]
  - NEUROPATHY PERIPHERAL [None]
  - PALLOR [None]
  - DEATH [None]
  - NAUSEA [None]
